FAERS Safety Report 17089010 (Version 4)
Quarter: 2019Q4

REPORT INFORMATION
  Report Type: Spontaneous
  Country: JP (occurrence: JP)
  Receive Date: 20191128
  Receipt Date: 20191218
  Transmission Date: 20200122
  Serious: Yes (Death, Hospitalization, Other)
  Sender: FDA-Public Use
  Company Number: JP-009507513-1911JPN002655J

PATIENT
  Age: 59 Year
  Sex: Male

DRUGS (3)
  1. KEYTRUDA [Suspect]
     Active Substance: PEMBROLIZUMAB
     Indication: NON-SMALL CELL LUNG CANCER
     Dosage: 200 MILLIGRAM, Q3W
     Route: 041
     Dates: start: 20190926, end: 201911
  2. PEMETREXED DISODIUM [Concomitant]
     Active Substance: PEMETREXED DISODIUM
     Indication: NON-SMALL CELL LUNG CANCER
     Dosage: UNK
     Route: 042
     Dates: start: 20190926, end: 201911
  3. CISPLATIN. [Concomitant]
     Active Substance: CISPLATIN
     Indication: NON-SMALL CELL LUNG CANCER
     Dosage: UNK
     Route: 042
     Dates: start: 20190926, end: 201911

REACTIONS (10)
  - Colitis [Unknown]
  - Thrombotic microangiopathy [Unknown]
  - Gastrointestinal hypomotility [Unknown]
  - Pancytopenia [Fatal]
  - Sepsis [Fatal]
  - Diarrhoea [Unknown]
  - Infection [Fatal]
  - Haemophagocytic lymphohistiocytosis [Fatal]
  - Gastrointestinal wall thickening [Unknown]
  - Nausea [Unknown]

NARRATIVE: CASE EVENT DATE: 2019
